FAERS Safety Report 10246363 (Version 1)
Quarter: 2014Q2

REPORT INFORMATION
  Report Type: Spontaneous
  Country: US (occurrence: None)
  Receive Date: 20140617
  Receipt Date: 20140617
  Transmission Date: 20141212
  Serious: Yes (Life-Threatening, Disabling)
  Sender: FDA-Public Use
  Company Number: None

PATIENT
  Age: 57 Year
  Sex: Male
  Weight: 77.11 kg

DRUGS (1)
  1. AMIODARONE [Suspect]
     Indication: CARDIAC DISORDER
     Dosage: 1 200MG PILL TWICE DAILY, TWICE DAILY, TAKEN BY MOUTH
     Route: 048
     Dates: start: 20130114, end: 20140401

REACTIONS (4)
  - Muscle atrophy [None]
  - Paraesthesia [None]
  - Hypoaesthesia [None]
  - Abasia [None]
